FAERS Safety Report 16678852 (Version 1)
Quarter: 2019Q3

REPORT INFORMATION
  Report Type: Spontaneous
  Country: US (occurrence: US)
  Receive Date: 20190621
  Receipt Date: 20190621
  Transmission Date: 20191004
  Serious: Yes (Hospitalization)
  Sender: FDA-Public Use
  Company Number: None

PATIENT
  Age: 71 Year
  Sex: Male
  Weight: 92.7 kg

DRUGS (18)
  1. CISPLATIN. [Suspect]
     Active Substance: CISPLATIN
     Dates: end: 20190530
  2. AZITHROMYCIN ANHYDROUS. [Concomitant]
     Active Substance: AZITHROMYCIN ANHYDROUS
  3. METRONIDAZOLE-FLAGYL [Concomitant]
  4. XARELTO [Concomitant]
     Active Substance: RIVAROXABAN
  5. CEFEPIME [Concomitant]
     Active Substance: CEFEPIME HYDROCHLORIDE
  6. NEULASTA [Suspect]
     Active Substance: PEGFILGRASTIM
     Dates: end: 20190530
  7. ALBUTEROL. [Concomitant]
     Active Substance: ALBUTEROL
  8. POTASSIUM CHLORIDE. [Concomitant]
     Active Substance: POTASSIUM CHLORIDE
  9. VANCOMYCIN [Concomitant]
     Active Substance: VANCOMYCIN
  10. GEMCITABINE HYDROCHLORIDE. [Suspect]
     Active Substance: GEMCITABINE HYDROCHLORIDE
     Dates: end: 20190529
  11. IPROTROPIUM-ALBERTEROL [Concomitant]
  12. COMPAZINE [Concomitant]
     Active Substance: PROCHLORPERAZINE MALEATE
  13. CYANOCOBALAMIN. [Concomitant]
     Active Substance: CYANOCOBALAMIN
  14. IOHEXOL [Concomitant]
     Active Substance: IOHEXOL
  15. ZOFRAN [Concomitant]
     Active Substance: ONDANSETRON HYDROCHLORIDE
  16. NEULASTA [Concomitant]
     Active Substance: PEGFILGRASTIM
  17. D5W-0.9 NACL _ POTASSIUM CHLORIDE [Concomitant]
  18. MAGNESIUM SULFAGE [Concomitant]

REACTIONS (10)
  - Pyrexia [None]
  - Fatigue [None]
  - Chest pain [None]
  - Pleuritic pain [None]
  - Respiratory distress [None]
  - Hypoxia [None]
  - Pneumonia aspiration [None]
  - Myalgia [None]
  - Tachycardia [None]
  - Hypotension [None]

NARRATIVE: CASE EVENT DATE: 20190616
